FAERS Safety Report 14608154 (Version 1)
Quarter: 2018Q1

REPORT INFORMATION
  Report Type: Spontaneous
  Country: US (occurrence: US)
  Receive Date: 20180307
  Receipt Date: 20180307
  Transmission Date: 20180509
  Serious: No
  Sender: FDA-Public Use
  Company Number: US-BEH-2018088479

PATIENT
  Sex: Female

DRUGS (1)
  1. CORIFACT [Suspect]
     Active Substance: FACTOR XIII CONCENTRATE (HUMAN)
     Indication: PLATELET DISORDER
     Dosage: 2832 IU, TOT
     Route: 042
     Dates: start: 20161013

REACTIONS (1)
  - No adverse event [Unknown]
